FAERS Safety Report 5997525-4 (Version None)
Quarter: 2008Q4

REPORT INFORMATION
  Report Type: 
  Country: None (occurrence: None)
  Receive Date: 20081212
  Receipt Date: 20081114
  Transmission Date: 20090506
  Serious: No
  Sender: FDA-Public Use
  Company Number: US-ABBOTT-08P-163-0487950-00

PATIENT
  Sex: Female
  Weight: 66.738 kg

DRUGS (8)
  1. HUMIRA [Suspect]
     Indication: ANKYLOSING SPONDYLITIS
     Route: 058
     Dates: start: 20080201, end: 20081114
  2. HUMIRA [Suspect]
     Route: 058
     Dates: start: 20081114
  3. PREDNISONE TAB [Concomitant]
     Indication: DRUG USE FOR UNKNOWN INDICATION
  4. METOPROLOL SUCCINATE [Concomitant]
     Indication: DRUG USE FOR UNKNOWN INDICATION
  5. LEVOTHYROXINE SODIUM [Concomitant]
     Indication: DRUG USE FOR UNKNOWN INDICATION
  6. LOVASTATIN [Concomitant]
     Indication: DRUG USE FOR UNKNOWN INDICATION
  7. UNKKNOWN PAIN MEDICATIONS [Concomitant]
     Indication: ANKYLOSING SPONDYLITIS
  8. MUSCLE RELAXERS [Concomitant]
     Indication: ANKYLOSING SPONDYLITIS

REACTIONS (1)
  - DRUG EFFECT DECREASED [None]
